FAERS Safety Report 4543135-5 (Version None)
Quarter: 2005Q1

REPORT INFORMATION
  Report Type: 
  Country: None (occurrence: None)
  Receive Date: 20050103
  Receipt Date: 20041125
  Transmission Date: 20050727
  Serious: Yes (Life-Threatening, Hospitalization)
  Sender: FDA-Public Use
  Company Number: DE-NOVOPROD-240751

PATIENT
  Age: 47 Year
  Sex: Female
  Weight: 74 kg

DRUGS (1)
  1. ACTRAPID [Suspect]
     Indication: DIABETES MELLITUS INSULIN-DEPENDENT
     Dosage: 6 IU, SINGLE

REACTIONS (9)
  - BRAIN OEDEMA [None]
  - DRUG HYPERSENSITIVITY [None]
  - FOOD POISONING [None]
  - KETOACIDOSIS [None]
  - PSYCHOTIC DISORDER [None]
  - RENAL FAILURE [None]
  - RESPIRATORY ARREST [None]
  - TYPE IV HYPERSENSITIVITY REACTION [None]
  - VOMITING [None]
